FAERS Safety Report 8133280-X (Version None)
Quarter: 2012Q1

REPORT INFORMATION
  Report Type: 
  Country: None (occurrence: None)
  Receive Date: 20120213
  Receipt Date: 20120206
  Transmission Date: 20120608
  Serious: Yes (Other)
  Sender: FDA-Public Use
  Company Number: US-ROCHE-783951

PATIENT
  Sex: Male
  Weight: 93.524 kg

DRUGS (5)
  1. TRIAMCINOLONE [Concomitant]
  2. HYDROCORTISONE [Concomitant]
  3. DOXYCYCLINE [Concomitant]
  4. ACCUTANE [Suspect]
     Dates: start: 20040201, end: 20040501
  5. ACCUTANE [Suspect]
     Indication: PRODUCT USED FOR UNKNOWN INDICATION
     Route: 065
     Dates: start: 20020601, end: 20021201

REACTIONS (5)
  - IRRITABLE BOWEL SYNDROME [None]
  - STRESS [None]
  - DEPRESSION [None]
  - INFLAMMATORY BOWEL DISEASE [None]
  - COLITIS ULCERATIVE [None]
